FAERS Safety Report 14315287 (Version 1)
Quarter: 2017Q4

REPORT INFORMATION
  Report Type: Spontaneous
  Country: GB (occurrence: GB)
  Receive Date: 20171221
  Receipt Date: 20171221
  Transmission Date: 20180321
  Serious: Yes (Other)
  Sender: FDA-Public Use
  Company Number: GB-TEVA-2017-GB-833866

PATIENT
  Age: 50 Year
  Sex: Female
  Weight: 99 kg

DRUGS (4)
  1. AMANTADINE HYDROCHLORIDE. [Concomitant]
     Active Substance: AMANTADINE HYDROCHLORIDE
     Dosage: 100 MILLIGRAM DAILY; TO START INCREASING TO 200MG
     Dates: start: 20171102
  2. CETIRIZINE [Concomitant]
     Active Substance: CETIRIZINE HYDROCHLORIDE
     Dosage: EACH DAY
     Dates: start: 20170619
  3. AMITRIPTYLINE HYDROCHLORIDE. [Concomitant]
     Active Substance: AMITRIPTYLINE HYDROCHLORIDE
     Dosage: 1 DOSAGE FORMS DAILY; AT NIGHT FOR 1 WEEK; INCREASE
     Dates: start: 20161214
  4. MODAFINIL. [Suspect]
     Active Substance: MODAFINIL
     Dates: start: 20171102

REACTIONS (2)
  - Pharyngeal oedema [Recovered/Resolved]
  - Mouth swelling [Unknown]

NARRATIVE: CASE EVENT DATE: 20171102
